FAERS Safety Report 17071945 (Version 1)
Quarter: 2019Q4

REPORT INFORMATION
  Report Type: Spontaneous
  Country: SE (occurrence: SE)
  Receive Date: 20191125
  Receipt Date: 20191125
  Transmission Date: 20200122
  Serious: Yes (Hospitalization, Other)
  Sender: FDA-Public Use
  Company Number: SE-SA-2019SA322606

PATIENT
  Age: 21 Year
  Sex: Female

DRUGS (2)
  1. STILNOCT [Suspect]
     Active Substance: ZOLPIDEM TARTRATE
     Dosage: UNK (8 + 10 PCS STILNOCT 10 MG, THE RIGHT SAFE AMOUNT)
     Route: 048
     Dates: start: 20180330, end: 20180330
  2. PROMETHAZINE HYDROCHLORIDE. [Suspect]
     Active Substance: PROMETHAZINE HYDROCHLORIDE
     Dosage: UNK (80 LERGIGAN 25 MG,THE RIGHT SAFE AMOUNT)
     Route: 048
     Dates: start: 20180330, end: 20180330

REACTIONS (4)
  - Vomiting [Unknown]
  - Intentional self-injury [Unknown]
  - Somnolence [Unknown]
  - Intentional overdose [Unknown]

NARRATIVE: CASE EVENT DATE: 201803
